FAERS Safety Report 6257365-8 (Version None)
Quarter: 2009Q3

REPORT INFORMATION
  Report Type: 
  Country: None (occurrence: None)
  Receive Date: 20090706
  Receipt Date: 20090630
  Transmission Date: 20100115
  Serious: Yes (Death, Other)
  Sender: FDA-Public Use
  Company Number: PHHY2009BR26561

PATIENT
  Sex: Female

DRUGS (8)
  1. EXFORGE [Suspect]
     Dosage: 160/5 MG/DAY
     Route: 048
  2. SERTRALINE [Concomitant]
  3. NATRILIX [Concomitant]
  4. DECADRON [Concomitant]
     Indication: MUSCULOSKELETAL PAIN
  5. METICORTEN [Concomitant]
  6. ALIVIUM (IBUPROFEN) [Concomitant]
  7. METHOTREXATE [Concomitant]
  8. VENLAFAXINE HYDROCHLORIDE [Concomitant]
     Dosage: 1 TABLET (150 MG)/DAY

REACTIONS (7)
  - CARDIAC ARREST [None]
  - DEATH [None]
  - NEOPLASM [None]
  - NEPHROLITHIASIS [None]
  - POST PROCEDURAL COMPLICATION [None]
  - PULMONARY EMBOLISM [None]
  - SURGERY [None]
